FAERS Safety Report 10581236 (Version 2)
Quarter: 2015Q1

REPORT INFORMATION
  Report Type: Report from Study
  Country: JP (occurrence: JP)
  Receive Date: 20141113
  Receipt Date: 20150115
  Transmission Date: 20150720
  Serious: Yes (Other)
  Sender: FDA-Public Use
  Company Number: JP-SHIONOGI, INC-2014001116

PATIENT
  Age: 67 Year
  Sex: Female
  Weight: 49 kg

DRUGS (5)
  1. FINIBAX [Suspect]
     Active Substance: DORIPENEM MONOHYDRATE
     Indication: MENINGITIS
     Dosage: 0.5 G, TID
     Route: 041
     Dates: start: 20140426, end: 20140428
  2. FINIBAX [Suspect]
     Active Substance: DORIPENEM MONOHYDRATE
     Dosage: 0.5 G, TID
     Route: 041
     Dates: start: 20140528, end: 20140606
  3. FINIBAX [Suspect]
     Active Substance: DORIPENEM MONOHYDRATE
     Dosage: 0.5 G, TID
     Route: 041
     Dates: start: 20140513, end: 20140518
  4. SEFMAZON [Concomitant]
     Active Substance: CEFAZOLIN
     Indication: MENINGITIS
     Dosage: 1 G, BID
     Route: 065
     Dates: start: 20140519, end: 20140527
  5. FINIBAX [Suspect]
     Active Substance: DORIPENEM MONOHYDRATE
     Dosage: 0.5 G, TID
     Route: 041
     Dates: start: 20140722, end: 20140725

REACTIONS (1)
  - Hepatic function abnormal [Recovered/Resolved]

NARRATIVE: CASE EVENT DATE: 20140428
